FAERS Safety Report 12155916 (Version 1)
Quarter: 2016Q1

REPORT INFORMATION
  Report Type: Spontaneous
  Country: US (occurrence: US)
  Receive Date: 20160307
  Receipt Date: 20160307
  Transmission Date: 20160526
  Serious: No
  Sender: FDA-Public Use
  Company Number: US-SHIRE-US201602748

PATIENT
  Age: 73 Year
  Sex: Female
  Weight: 74.83 kg

DRUGS (2)
  1. PRAMIPEXOLE. [Concomitant]
     Active Substance: PRAMIPEXOLE
     Indication: RESTLESS LEGS SYNDROME
     Dosage: 0.5 MG, 1X/DAY:QD
     Route: 065
  2. LIALDA [Suspect]
     Active Substance: MESALAMINE
     Indication: DEFAECATION URGENCY
     Dosage: 1.2 G, 2X/DAY:BID
     Route: 048
     Dates: start: 20151127, end: 201512

REACTIONS (7)
  - Defaecation urgency [Recovering/Resolving]
  - Product use issue [Recovered/Resolved]
  - Inappropriate schedule of drug administration [Recovered/Resolved]
  - Condition aggravated [Recovering/Resolving]
  - Unevaluable event [Recovered/Resolved]
  - Product quality issue [Recovered/Resolved]
  - Feeling abnormal [Recovered/Resolved]

NARRATIVE: CASE EVENT DATE: 2015
